FAERS Safety Report 17026603 (Version 2)
Quarter: 2019Q4

REPORT INFORMATION
  Report Type: Spontaneous
  Country: US (occurrence: US)
  Receive Date: 20191113
  Receipt Date: 20191212
  Transmission Date: 20200122
  Serious: Yes (Other)
  Sender: FDA-Public Use
  Company Number: US-AKORN PHARMACEUTICALS-2019AKN02327

PATIENT
  Age: 12 Year
  Sex: Female

DRUGS (1)
  1. MYORISAN [Suspect]
     Active Substance: ISOTRETINOIN
     Indication: ACNE
     Dosage: 40 MG, 1X/DAY
     Route: 048
     Dates: start: 20190925, end: 2019

REACTIONS (6)
  - Mood swings [Recovering/Resolving]
  - Thinking abnormal [Recovering/Resolving]
  - Anger [Recovering/Resolving]
  - Depressed mood [Recovering/Resolving]
  - Mood altered [Recovering/Resolving]
  - Off label use [Recovered/Resolved]

NARRATIVE: CASE EVENT DATE: 2019
